FAERS Safety Report 7428845-4 (Version None)
Quarter: 2011Q2

REPORT INFORMATION
  Report Type: 
  Country: None (occurrence: None)
  Receive Date: 20110421
  Receipt Date: 20110411
  Transmission Date: 20111010
  Serious: Yes (Other)
  Sender: FDA-Public Use
  Company Number: PHHY2011DE17527

PATIENT
  Sex: Female

DRUGS (2)
  1. COTRIM [Concomitant]
     Dosage: 2X1 TABLET MONDAY AND THURSDAY
     Route: 048
     Dates: start: 20110201
  2. TASIGNA [Suspect]
     Indication: CHRONIC MYELOID LEUKAEMIA
     Dosage: 300 MG, BID
     Route: 048
     Dates: start: 20110201

REACTIONS (8)
  - PAIN [None]
  - ERYTHEMA [None]
  - PRURITUS [None]
  - KERATOSIS FOLLICULAR [None]
  - ACNE [None]
  - PAIN OF SKIN [None]
  - NIPPLE PAIN [None]
  - RASH [None]
